FAERS Safety Report 6384988-8 (Version None)
Quarter: 2009Q4

REPORT INFORMATION
  Report Type: 
  Country: None (occurrence: None)
  Receive Date: 20091002
  Receipt Date: 20090923
  Transmission Date: 20100525
  Serious: Yes (Other)
  Sender: FDA-Public Use
  Company Number: IE-ROCHE-657804

PATIENT
  Age: 16 Year
  Sex: Male

DRUGS (3)
  1. ROACCUTANE [Suspect]
     Indication: ACNE
     Route: 048
  2. ROACCUTANE [Suspect]
     Dosage: DOSE WAS INCREASED TO 20 MG FOR 10-12 WEEK.
     Route: 048
  3. ROACCUTANE [Suspect]
     Route: 048
     Dates: start: 20090701, end: 20090701

REACTIONS (6)
  - ANXIETY [None]
  - CRYING [None]
  - DEPRESSION [None]
  - INSOMNIA [None]
  - MOOD SWINGS [None]
  - SOCIAL AVOIDANT BEHAVIOUR [None]
